FAERS Safety Report 21349668 (Version 1)
Quarter: 2022Q3

REPORT INFORMATION
  Report Type: Spontaneous
  Country: SG (occurrence: SG)
  Receive Date: 20220919
  Receipt Date: 20220919
  Transmission Date: 20221026
  Serious: Yes (Disabling, Other)
  Sender: FDA-Public Use
  Company Number: SG-CHEPLA-2022007873

PATIENT
  Age: 31 Year
  Sex: Male

DRUGS (6)
  1. GANCICLOVIR [Suspect]
     Active Substance: GANCICLOVIR
     Indication: Cytomegalovirus chorioretinitis
     Dosage: FIRST DOSE OF IVT GANCICLOVIR 2 MG/0.04 ML
     Route: 031
     Dates: start: 20211209
  2. GANCICLOVIR [Suspect]
     Active Substance: GANCICLOVIR
     Indication: Cytomegalovirus chorioretinitis
     Dosage: 10 MG/0.2 ML OF IVT GANCICLOVIR WAS GIVEN TO THE LEFT EYE
     Route: 031
     Dates: start: 20211213
  3. FOSCARNET [Suspect]
     Active Substance: FOSCARNET
     Indication: Cytomegalovirus chorioretinitis
     Route: 042
     Dates: start: 202111
  4. FOSCARNET [Suspect]
     Active Substance: FOSCARNET
     Indication: Cytomegalovirus viraemia
     Route: 042
     Dates: start: 202111
  5. FOSCARNET [Suspect]
     Active Substance: FOSCARNET
     Indication: Cytomegalovirus chorioretinitis
     Route: 042
  6. FOSCARNET [Suspect]
     Active Substance: FOSCARNET
     Indication: Cytomegalovirus viraemia
     Route: 042

REACTIONS (8)
  - Subretinal fluid [Recovered/Resolved]
  - Retinal oedema [Unknown]
  - Accidental overdose [Unknown]
  - Sudden visual loss [Recovering/Resolving]
  - Pupillary reflex impaired [Unknown]
  - Intraocular pressure increased [Recovering/Resolving]
  - Corneal deposits [Recovered/Resolved]
  - Product use issue [Recovered/Resolved]

NARRATIVE: CASE EVENT DATE: 20211209
